FAERS Safety Report 21394770 (Version 1)
Quarter: 2022Q3

REPORT INFORMATION
  Report Type: Spontaneous
  Country: US (occurrence: US)
  Receive Date: 20220930
  Receipt Date: 20220930
  Transmission Date: 20221027
  Serious: Yes (Hospitalization, Other)
  Sender: FDA-Public Use
  Company Number: US-CADILA HEALTHCARE LIMITED-US-ZYDUS-083048

PATIENT

DRUGS (15)
  1. ANASTROZOLE [Suspect]
     Active Substance: ANASTROZOLE
     Indication: Breast cancer metastatic
     Dosage: UNK
     Route: 065
  2. TOPIRAMATE [Suspect]
     Active Substance: TOPIRAMATE
     Indication: Breast cancer metastatic
     Dosage: UNK
     Route: 065
  3. AMIODARONE [Suspect]
     Active Substance: AMIODARONE
     Indication: Atrial fibrillation
     Dosage: 200 MILLIGRAM, BID
     Route: 065
  4. BUPROPION [Suspect]
     Active Substance: BUPROPION
     Indication: Major depression
     Dosage: 300 MILLIGRAM
     Route: 065
  5. BUPROPION [Suspect]
     Active Substance: BUPROPION
     Indication: Anxiety
  6. DILTIAZEM [Suspect]
     Active Substance: DILTIAZEM
     Indication: Atrial fibrillation
     Dosage: UNK
     Route: 065
  7. PRIMIDONE [Suspect]
     Active Substance: PRIMIDONE
     Indication: Breast cancer metastatic
     Dosage: UNK
     Route: 065
  8. TRASTUZUMAB [Concomitant]
     Active Substance: TRASTUZUMAB
     Indication: Breast cancer metastatic
     Dosage: UNK
     Route: 065
  9. TRASTUZUMAB [Concomitant]
     Active Substance: TRASTUZUMAB
     Dosage: UNK
     Route: 065
  10. ADENOSINE [Concomitant]
     Active Substance: ADENOSINE
     Indication: Atrial fibrillation
     Dosage: UNK
     Route: 065
  11. DABIGATRAN [Concomitant]
     Active Substance: DABIGATRAN
     Indication: Atrial fibrillation
     Dosage: 150 MILLIGRAM, BID
     Route: 065
  12. DULOXETINE [Concomitant]
     Active Substance: DULOXETINE
     Indication: Major depression
     Dosage: 60 MILLIGRAM
     Route: 065
  13. DULOXETINE [Concomitant]
     Active Substance: DULOXETINE
     Indication: Anxiety
  14. TRAZODONE [Concomitant]
     Active Substance: TRAZODONE HYDROCHLORIDE
     Indication: Major depression
     Dosage: 50 MILLIGRAM
     Route: 065
  15. TRAZODONE [Concomitant]
     Active Substance: TRAZODONE HYDROCHLORIDE
     Indication: Anxiety

REACTIONS (2)
  - Hallucination [Recovered/Resolved]
  - Drug ineffective [Unknown]
